FAERS Safety Report 6800186-5 (Version None)
Quarter: 2010Q2

REPORT INFORMATION
  Report Type: 
  Country: None (occurrence: None)
  Receive Date: 20100616
  Receipt Date: 20100610
  Transmission Date: 20101027
  Serious: Yes (Death, Hospitalization)
  Sender: FDA-Public Use
  Company Number: 2010SP032477

PATIENT
  Age: 77 Year
  Sex: Male

DRUGS (1)
  1. ORGARAN [Suspect]
     Indication: HEPARIN-INDUCED THROMBOCYTOPENIA
     Dosage: ; IV
     Route: 042
     Dates: start: 20100512, end: 20100524

REACTIONS (22)
  - ABDOMINAL DISTENSION [None]
  - ANAEMIA [None]
  - AORTIC DISSECTION [None]
  - ARRHYTHMIA [None]
  - CONDITION AGGRAVATED [None]
  - DIARRHOEA [None]
  - DIVERTICULUM INTESTINAL [None]
  - GASTROINTESTINAL DISORDER [None]
  - GENERAL PHYSICAL HEALTH DETERIORATION [None]
  - HAEMODYNAMIC INSTABILITY [None]
  - HAEMOGLOBIN DECREASED [None]
  - HYPOVOLAEMIA [None]
  - LEUKOCYTOSIS [None]
  - MULTI-ORGAN FAILURE [None]
  - MUSCLE HAEMORRHAGE [None]
  - PERIPHERAL ISCHAEMIA [None]
  - PYREXIA [None]
  - REGURGITATION [None]
  - RETROPERITONEAL HAEMATOMA [None]
  - SCAN ABDOMEN ABNORMAL [None]
  - SHOCK HAEMORRHAGIC [None]
  - SKIN LESION [None]
